FAERS Safety Report 5553620-5 (Version None)
Quarter: 2007Q4

REPORT INFORMATION
  Report Type: 
  Country: None (occurrence: None)
  Receive Date: 20071213
  Receipt Date: 20071210
  Transmission Date: 20080405
  Serious: Yes (Death)
  Sender: FDA-Public Use
  Company Number: PHRM2007FR02342

PATIENT
  Sex: Male

DRUGS (4)
  1. GLEEVEC [Suspect]
     Indication: CHRONIC MYELOID LEUKAEMIA
     Dosage: 400 MG DAILY
     Dates: start: 20070302
  2. GLEEVEC [Suspect]
     Dosage: 400 MG DAILY
     Route: 048
     Dates: start: 20060501, end: 20060525
  3. DASATINIB [Concomitant]
     Indication: CHRONIC MYELOID LEUKAEMIA
     Dosage: 50 MG, BID
     Route: 048
     Dates: start: 20060801
  4. HYDREA [Concomitant]
     Dosage: 2 DF DAILY
     Route: 048

REACTIONS (4)
  - COMPLETED SUICIDE [None]
  - GASTROINTESTINAL PAIN [None]
  - MUSCLE SPASMS [None]
  - NAUSEA [None]
